FAERS Safety Report 7366496-0 (Version None)
Quarter: 2011Q1

REPORT INFORMATION
  Report Type: 
  Country: None (occurrence: None)
  Receive Date: 20110322
  Receipt Date: 20100909
  Transmission Date: 20110831
  Serious: Yes (Other)
  Sender: FDA-Public Use
  Company Number: US-BAYER-200942373NA

PATIENT
  Sex: Female
  Weight: 68.027 kg

DRUGS (12)
  1. YAZ [Suspect]
     Dosage: UNK
     Dates: start: 20080513, end: 20090408
  2. AUGMENTIN '125' [Concomitant]
  3. NEXIUM [Concomitant]
     Indication: GASTROOESOPHAGEAL REFLUX DISEASE
     Dosage: 40 MG, BID
     Dates: start: 20090801
  4. YASMIN [Suspect]
     Dosage: UNK
     Dates: start: 20080301, end: 20090601
  5. XANAX [Concomitant]
     Indication: ANXIETY
     Dosage: 1 MG, PRN
     Dates: start: 20080501, end: 20100101
  6. BENICAR [Concomitant]
     Dosage: UNK UNK, PRN
  7. ACETAMINOPHEN AND HYDROCODONE BITARTRATE [Concomitant]
  8. YAZ [Suspect]
     Indication: CONTRACEPTION
     Dosage: UNK
     Dates: start: 20080501, end: 20090701
  9. MACROBID [Concomitant]
     Dosage: 100 MG, QD
  10. NAPROXEN [Concomitant]
     Dosage: 500 MG, UNK
     Dates: end: 20090722
  11. CARAFATE [Concomitant]
     Indication: DYSPEPSIA
     Dosage: 1 G, TID
  12. TAMIFLU [Concomitant]
     Dosage: UNK UNK, QD
     Route: 048

REACTIONS (13)
  - NAUSEA [None]
  - CHEST PAIN [None]
  - HELICOBACTER GASTRITIS [None]
  - ABDOMINAL PAIN UPPER [None]
  - PEPTIC ULCER [None]
  - BILIARY DYSKINESIA [None]
  - GALLBLADDER DISORDER [None]
  - DYSPEPSIA [None]
  - CHOLECYSTITIS CHRONIC [None]
  - VOMITING [None]
  - GASTROOESOPHAGEAL REFLUX DISEASE [None]
  - HIATUS HERNIA [None]
  - DIARRHOEA [None]
